FAERS Safety Report 8168532-0 (Version None)
Quarter: 2012Q1

REPORT INFORMATION
  Report Type: 
  Country: None (occurrence: None)
  Receive Date: 20120227
  Receipt Date: 20120227
  Transmission Date: 20120608
  Serious: No
  Sender: FDA-Public Use
  Company Number: None

PATIENT
  Age: 68 Year
  Sex: Male
  Weight: 98.883 kg

DRUGS (1)
  1. AVELOX [Suspect]
     Indication: PNEUMONIA
     Route: 048
     Dates: start: 20120210, end: 20120222

REACTIONS (5)
  - FATIGUE [None]
  - JOINT LOCK [None]
  - MYALGIA [None]
  - RASH [None]
  - GAIT DISTURBANCE [None]
